FAERS Safety Report 8989722 (Version 2)
Quarter: 2013Q1

REPORT INFORMATION
  Report Type: Spontaneous
  Country: GB (occurrence: JP)
  Receive Date: 20121228
  Receipt Date: 20130110
  Transmission Date: 20140127
  Serious: Yes (Death, Other)
  Sender: FDA-Public Use
  Company Number: GB-SANOFI-AVENTIS-2012SA094294

PATIENT
  Age: 67 Year
  Sex: Male
  Weight: 69 kg

DRUGS (14)
  1. DOCETAXEL [Suspect]
     Indication: LUNG ADENOCARCINOMA METASTATIC
     Route: 041
     Dates: start: 20110928, end: 20110928
  2. DOCETAXEL [Suspect]
     Indication: LUNG ADENOCARCINOMA METASTATIC
     Route: 041
     Dates: start: 20111020, end: 20111020
  3. BEVACIZUMAB [Suspect]
     Indication: LUNG ADENOCARCINOMA METASTATIC
     Dosage: DOSE 15 MG/KG
     Route: 041
     Dates: start: 20110421, end: 20110825
  4. BEVACIZUMAB [Suspect]
     Indication: LUNG ADENOCARCINOMA METASTATIC
     Dosage: DOSE 15 MG/KG
     Route: 041
     Dates: start: 20110928, end: 20111020
  5. CARBOPLATIN [Concomitant]
     Indication: LUNG ADENOCARCINOMA METASTATIC
     Route: 041
     Dates: start: 20110421, end: 20110704
  6. PEMETREXED [Concomitant]
     Indication: LUNG ADENOCARCINOMA METASTATIC
     Route: 041
     Dates: start: 20110421, end: 20110704
  7. GLIMICRON [Concomitant]
     Indication: DIABETES MELLITUS
     Route: 048
     Dates: start: 2008
  8. METFORMIN [Concomitant]
     Indication: DIABETES MELLITUS
     Route: 048
     Dates: start: 2008
  9. ALLOPURINOL [Concomitant]
     Indication: HYPERURICAEMIA
     Route: 048
  10. DEPAS [Concomitant]
     Indication: INSOMNIA
     Route: 048
  11. LOXONIN [Concomitant]
     Indication: CANCER PAIN
     Route: 048
     Dates: start: 201104
  12. MUCOSTA [Concomitant]
     Indication: GASTRITIS PROPHYLAXIS
     Route: 048
     Dates: start: 201104
  13. MUCODYNE [Concomitant]
     Indication: PRODUCTIVE COUGH
     Route: 048
     Dates: start: 201104
  14. POLAPREZINC [Concomitant]
     Indication: DYSGEUSIA
     Route: 048
     Dates: start: 201104

REACTIONS (4)
  - Interstitial lung disease [Fatal]
  - Intestinal perforation [Fatal]
  - Acute respiratory distress syndrome [Fatal]
  - Infection [Unknown]
